FAERS Safety Report 22242616 (Version 1)
Quarter: 2023Q2

REPORT INFORMATION
  Report Type: Spontaneous
  Country: US (occurrence: US)
  Receive Date: 20230424
  Receipt Date: 20230424
  Transmission Date: 20230722
  Serious: No
  Sender: FDA-Public Use
  Company Number: US-ABBVIE-4716161

PATIENT
  Sex: Female

DRUGS (1)
  1. SYNTHROID [Suspect]
     Active Substance: LEVOTHYROXINE SODIUM
     Indication: Product used for unknown indication
     Route: 048

REACTIONS (7)
  - Hyperhidrosis [Unknown]
  - Insomnia [Unknown]
  - Depression [Unknown]
  - Thyroid mass [Unknown]
  - Feeling of body temperature change [Unknown]
  - Asthenia [Unknown]
  - Anxiety [Unknown]
